FAERS Safety Report 19802756 (Version 2)
Quarter: 2021Q3

REPORT INFORMATION
  Report Type: Spontaneous
  Country: US (occurrence: US)
  Receive Date: 20210908
  Receipt Date: 20210924
  Transmission Date: 20211014
  Serious: No
  Sender: FDA-Public Use
  Company Number: US-BRISTOL-MYERS SQUIBB COMPANY-BMS-2021-090029

PATIENT
  Age: 72 Year
  Sex: Female
  Weight: 79.37 kg

DRUGS (1)
  1. ELIQUIS [Suspect]
     Active Substance: APIXABAN
     Indication: PULMONARY EMBOLISM
     Dosage: 5 MILLIGRAM, BID
     Route: 048
     Dates: start: 202108

REACTIONS (3)
  - Pruritus [Unknown]
  - Cystitis [Unknown]
  - Dizziness [Unknown]

NARRATIVE: CASE EVENT DATE: 20210831
